FAERS Safety Report 12079435 (Version 2)
Quarter: 2016Q1

REPORT INFORMATION
  Report Type: Report from Study
  Country: US (occurrence: US)
  Receive Date: 20160216
  Receipt Date: 20160303
  Transmission Date: 20160526
  Serious: No
  Sender: FDA-Public Use
  Company Number: PHEH2016US003235

PATIENT
  Age: 76 Year
  Sex: Female

DRUGS (1)
  1. COSENTYX [Suspect]
     Active Substance: SECUKINUMAB
     Indication: PSORIASIS
     Dosage: 300 MG, QMO
     Route: 058
     Dates: start: 20151210

REACTIONS (4)
  - Erythema [Unknown]
  - Rash [Unknown]
  - Skin discolouration [Unknown]
  - Psoriasis [Unknown]

NARRATIVE: CASE EVENT DATE: 20160207
